FAERS Safety Report 11386894 (Version 3)
Quarter: 2015Q4

REPORT INFORMATION
  Report Type: Spontaneous
  Country: US (occurrence: US)
  Receive Date: 20150817
  Receipt Date: 20151217
  Transmission Date: 20160304
  Serious: No
  Sender: FDA-Public Use
  Company Number: US-PFIZER INC-2015216501

PATIENT
  Age: 55 Year
  Sex: Female
  Weight: 44 kg

DRUGS (2)
  1. LEVOXYL [Suspect]
     Active Substance: LEVOTHYROXINE SODIUM
     Indication: AUTOIMMUNE THYROIDITIS
     Dosage: 75 (UNKNOWN UNIT), 1X/DAY
  2. LEVOXYL [Suspect]
     Active Substance: LEVOTHYROXINE SODIUM
     Dosage: 75 UG, UNK
     Dates: start: 201506

REACTIONS (4)
  - Panic attack [Unknown]
  - Feeling abnormal [Not Recovered/Not Resolved]
  - Fear [Unknown]
  - Paranoia [Unknown]

NARRATIVE: CASE EVENT DATE: 2015
